FAERS Safety Report 12900135 (Version 1)
Quarter: 2016Q4

REPORT INFORMATION
  Report Type: Spontaneous
  Country: US (occurrence: US)
  Receive Date: 20161101
  Receipt Date: 20161101
  Transmission Date: 20170207
  Serious: No
  Sender: FDA-Public Use
  Company Number: US-PFIZER INC-2016503702

PATIENT
  Age: 58 Year
  Sex: Female

DRUGS (1)
  1. NEURONTIN [Suspect]
     Active Substance: GABAPENTIN
     Dosage: 150 MG, 2X/DAY
     Route: 048

REACTIONS (5)
  - Intentional product misuse [Unknown]
  - Weight increased [Unknown]
  - Dizziness [Unknown]
  - Movement disorder [Unknown]
  - Drug ineffective for unapproved indication [Unknown]
